FAERS Safety Report 25936156 (Version 1)
Quarter: 2025Q4

REPORT INFORMATION
  Report Type: Spontaneous
  Country: US (occurrence: US)
  Receive Date: 20251017
  Receipt Date: 20251017
  Transmission Date: 20260117
  Serious: No
  Sender: PFIZER
  Company Number: US-PFIZER INC-202500205221

PATIENT
  Sex: Female

DRUGS (1)
  1. STERILE WATER [Suspect]
     Active Substance: WATER
     Dosage: UNK

REACTIONS (1)
  - Burning sensation [Unknown]
